FAERS Safety Report 6208996-2 (Version None)
Quarter: 2009Q2

REPORT INFORMATION
  Report Type: 
  Country: None (occurrence: None)
  Receive Date: 20090529
  Receipt Date: 20090520
  Transmission Date: 20091009
  Serious: Yes (Other)
  Sender: FDA-Public Use
  Company Number: PHHY2009ES17613

PATIENT
  Age: 75 Year
  Sex: Male

DRUGS (3)
  1. EUCREAS [Suspect]
     Dosage: UNK
  2. RASILEZ [Suspect]
     Dosage: UNK
  3. ADIRO [Concomitant]
     Dosage: 100

REACTIONS (4)
  - HAEMATURIA [None]
  - HAEMORRHAGE URINARY TRACT [None]
  - PROSTATECTOMY [None]
  - URETHRAL INJURY [None]
